FAERS Safety Report 9839799 (Version 1)
Quarter: 2014Q1

REPORT INFORMATION
  Report Type: Spontaneous
  Country: US (occurrence: US)
  Receive Date: 20140124
  Receipt Date: 20140124
  Transmission Date: 20141002
  Serious: Yes (Other)
  Sender: FDA-Public Use
  Company Number: US-DRREDDYS-USA/USA/14/0037329

PATIENT
  Age: 47 Year
  Sex: Male

DRUGS (13)
  1. ONDANSETRON [Suspect]
     Indication: ANAESTHETIC PREMEDICATION
     Route: 065
  2. DULOXETINE [Suspect]
     Indication: DEPRESSION
     Route: 065
  3. TRAZODONE [Suspect]
     Indication: DEPRESSION
     Route: 065
  4. FENTANYL [Suspect]
     Indication: GENERAL ANAESTHESIA
     Route: 065
  5. GABAPENTIN [Concomitant]
     Indication: PAIN
     Route: 065
  6. MIDAZOLAM [Concomitant]
     Indication: GENERAL ANAESTHESIA
     Route: 065
  7. PROPOFOL [Concomitant]
     Indication: GENERAL ANAESTHESIA
     Route: 065
  8. SUCCINYLCHOLINE [Concomitant]
     Indication: GENERAL ANAESTHESIA
     Route: 065
  9. DESFLURANE [Concomitant]
     Indication: ANAESTHESIA
     Dosage: 6% - 8% INSPIRED; OXYGEN:AIR
     Route: 065
  10. VECURONIUM [Concomitant]
     Indication: ANAESTHESIA
     Route: 065
  11. KETAMINE [Concomitant]
     Route: 065
  12. GLYCOPYRROLATE [Concomitant]
     Indication: MUSCLE RELAXANT THERAPY
     Route: 065
  13. NEOSTIGMINE [Concomitant]
     Indication: MUSCLE RELAXANT THERAPY
     Route: 065

REACTIONS (1)
  - Serotonin syndrome [Recovered/Resolved]
